FAERS Safety Report 9220053 (Version 3)
Quarter: 2013Q4

REPORT INFORMATION
  Report Type: Spontaneous
  Country: JP (occurrence: JP)
  Receive Date: 20130409
  Receipt Date: 20131205
  Transmission Date: 20140711
  Serious: Yes (Hospitalization)
  Sender: FDA-Public Use
  Company Number: JP-B.I. PHARMACEUTICALS,INC./RIDGEFIELD-2013-BI-09075NB

PATIENT
  Age: 82 Year
  Sex: Male
  Weight: 75 kg

DRUGS (7)
  1. TRAZENTA [Suspect]
     Indication: DIABETES MELLITUS
     Dosage: 5 MG
     Route: 048
     Dates: start: 20120607
  2. BASEN OD / VOGLIBOSE [Concomitant]
     Indication: DIABETES MELLITUS
     Dosage: 0.6 MG
     Route: 048
  3. LIPITOR / ATORVASTATIN CALCIUM HYDRATE [Concomitant]
     Indication: HYPERLIPIDAEMIA
     Dosage: 10 MG
     Route: 048
  4. PRERAN / TRANDOLAPRIL [Concomitant]
     Dosage: 0.5 MG
     Route: 048
  5. BAYASPIRIN / ASPIRIN [Concomitant]
     Indication: DIABETES MELLITUS
     Dosage: 100 MG
     Route: 048
  6. UNKNOWN DRUG [Concomitant]
     Indication: HYPERURICAEMIA
     Route: 065
  7. PANALDINE / TICLOPIDINE HYDROCHLORIDE [Concomitant]
     Indication: DIABETES MELLITUS
     Route: 065

REACTIONS (3)
  - Postrenal failure [Recovered/Resolved]
  - Pyelonephritis [Recovered/Resolved]
  - Calculus ureteric [Recovered/Resolved]
